FAERS Safety Report 13380522 (Version 1)
Quarter: 2017Q1

REPORT INFORMATION
  Report Type: Spontaneous
  Country: US (occurrence: US)
  Receive Date: 20170329
  Receipt Date: 20170329
  Transmission Date: 20170429
  Serious: No
  Sender: FDA-Public Use
  Company Number: US-ASTRAZENECA-2017SE29583

PATIENT
  Sex: Female

DRUGS (2)
  1. FARXIGA [Suspect]
     Active Substance: DAPAGLIFLOZIN PROPANEDIOL
     Dosage: 5.0MG UNKNOWN
     Route: 048
  2. FARXIGA [Suspect]
     Active Substance: DAPAGLIFLOZIN PROPANEDIOL
     Dosage: 10.0MG UNKNOWN
     Route: 048
     Dates: start: 201610

REACTIONS (11)
  - Weight decreased [Unknown]
  - Circumstance or information capable of leading to medication error [Unknown]
  - Drug hypersensitivity [Unknown]
  - Lethargy [Unknown]
  - Hypophagia [Unknown]
  - Malaise [Unknown]
  - Somnolence [Unknown]
  - Blood glucose fluctuation [Unknown]
  - Needle issue [Unknown]
  - Blood glucose increased [Unknown]
  - Exercise tolerance decreased [Unknown]
